FAERS Safety Report 6847731-1 (Version None)
Quarter: 2010Q3

REPORT INFORMATION
  Report Type: 
  Country: None (occurrence: None)
  Receive Date: 20100716
  Receipt Date: 20100713
  Transmission Date: 20110219
  Serious: Yes (Death)
  Sender: FDA-Public Use
  Company Number: PHHY2010NL41544

PATIENT
  Sex: Female

DRUGS (4)
  1. TASIGNA [Suspect]
     Dosage: 200 MG, BID
     Dates: start: 20090826
  2. OXAZEPAM [Concomitant]
     Dosage: IF NECESSARY 1 TABLET (10 MG)
  3. PAROXETINE [Concomitant]
     Dosage: 10 MG, QD
  4. DOMPERIDONE [Concomitant]
     Dosage: 1 TABLET (10 MG), 1-4 TIMES DAILY

REACTIONS (1)
  - DEATH [None]
